FAERS Safety Report 23960695 (Version 2)
Quarter: 2024Q2

REPORT INFORMATION
  Report Type: Spontaneous
  Country: US (occurrence: US)
  Receive Date: 20240611
  Receipt Date: 20240613
  Transmission Date: 20240715
  Serious: Yes (Other)
  Sender: FDA-Public Use
  Company Number: US-PFIZER INC-202400190526

PATIENT
  Age: 87 Year
  Sex: Female

DRUGS (1)
  1. IBRANCE [Suspect]
     Active Substance: PALBOCICLIB
     Indication: Neoplasm malignant
     Dosage: TAKES IT 7 DAYS AND THEN ANOTHER 7 DAYS AND THEN ANOTHER 7 DAYS AND THEN HAS 7 DAYS OFF

REACTIONS (4)
  - Multiple fractures [Unknown]
  - Decreased appetite [Unknown]
  - Body height decreased [Unknown]
  - Weight fluctuation [Unknown]

NARRATIVE: CASE EVENT DATE: 20220101
